FAERS Safety Report 13883841 (Version 1)
Quarter: 2017Q3

REPORT INFORMATION
  Report Type: Report from Study
  Country: US (occurrence: US)
  Receive Date: 20170821
  Receipt Date: 20170821
  Transmission Date: 20171127
  Serious: No
  Sender: FDA-Public Use
  Company Number: US-ALEXION PHARMACEUTICALS INC.-A201709306

PATIENT
  Sex: Female
  Weight: 15.87 kg

DRUGS (1)
  1. SOLIRIS [Suspect]
     Active Substance: ECULIZUMAB
     Indication: HAEMOLYTIC URAEMIC SYNDROME
     Dosage: 300 MG, Q18-Q21DAYS
     Route: 042
     Dates: start: 20151230, end: 20170814

REACTIONS (1)
  - Complement factor C3 decreased [Recovering/Resolving]
